FAERS Safety Report 4336053-9 (Version None)
Quarter: 2004Q2

REPORT INFORMATION
  Report Type: 
  Country: None (occurrence: None)
  Receive Date: 20040406
  Receipt Date: 20040324
  Transmission Date: 20050107
  Serious: Yes (Hospitalization, Other)
  Sender: FDA-Public Use
  Company Number: 2004200335AU

PATIENT
  Age: 58 Year
  Sex: Male
  Weight: 81 kg

DRUGS (8)
  1. CELEBREX [Suspect]
     Indication: BACK PAIN
     Dosage: 200 MG, BID, ORAL
     Route: 048
     Dates: start: 20040103, end: 20040104
  2. INDAPAMIDE HEMIHYDRATE (INDAPAMIDE HEMIHYDRATE) [Concomitant]
  3. PERINDOPRIL ERBUMINE (PERINDOPRIL ERBUMINE) [Concomitant]
  4. DIABEX [Concomitant]
  5. DILATREND [Concomitant]
  6. LIPITOR [Concomitant]
  7. DIAMICRON (GLICLAZIDE) [Concomitant]
  8. ASPIRIN [Concomitant]

REACTIONS (3)
  - ACUTE PULMONARY OEDEMA [None]
  - BLOOD SODIUM DECREASED [None]
  - RENAL FAILURE ACUTE [None]
